FAERS Safety Report 19467379 (Version 1)
Quarter: 2021Q2

REPORT INFORMATION
  Report Type: Other
  Country: GB (occurrence: GB)
  Receive Date: 20210628
  Receipt Date: 20210628
  Transmission Date: 20210717
  Serious: Yes (Other)
  Sender: FDA-Public Use
  Company Number: GB-GLENMARK PHARMACEUTICALS-2021GMK054643

PATIENT

DRUGS (3)
  1. SPIRIVA [Concomitant]
     Active Substance: TIOTROPIUM BROMIDE MONOHYDRATE
     Indication: PRODUCT USED FOR UNKNOWN INDICATION
     Dosage: 2 DOSAGE FORM, OD (REPORTED AS: 2.5MG/DOSE. PUFFS)
     Route: 055
     Dates: start: 20210412, end: 20210527
  2. MONTELUKAST SODIUM. [Suspect]
     Active Substance: MONTELUKAST SODIUM
     Indication: PRODUCT USED FOR UNKNOWN INDICATION
     Dosage: 10 MILLIGRAM, OD (AT NIGHT)
     Route: 048
     Dates: start: 20200806, end: 20210212
  3. SALBUTAMOL [Concomitant]
     Active Substance: ALBUTEROL
     Indication: PRODUCT USED FOR UNKNOWN INDICATION
     Dosage: 2 DOSAGE FORM, AS NECESSARY (REPORTED AS: 100MICROGRAMS/DOSE INHALER CFC FREE)
     Route: 055
     Dates: start: 20210603

REACTIONS (5)
  - Mononeuropathy multiplex [Unknown]
  - Eosinophilic granulomatosis with polyangiitis [Not Recovered/Not Resolved]
  - Polyneuropathy [Unknown]
  - Vasculitis [Unknown]
  - Petechiae [Unknown]

NARRATIVE: CASE EVENT DATE: 20201015
